FAERS Safety Report 12051087 (Version 2)
Quarter: 2016Q1

REPORT INFORMATION
  Report Type: Report from Study
  Country: US (occurrence: US)
  Receive Date: 20160208
  Receipt Date: 20160219
  Transmission Date: 20160526
  Serious: No
  Sender: FDA-Public Use
  Company Number: US-BIOGEN-2016BI00184420

PATIENT
  Age: 60 Year
  Sex: Female

DRUGS (1)
  1. AVONEX [Suspect]
     Active Substance: INTERFERON BETA-1A
     Indication: MULTIPLE SCLEROSIS
     Dates: start: 20160115

REACTIONS (7)
  - Gingival pain [Recovered/Resolved]
  - Oral herpes [Recovered/Resolved]
  - Central nervous system lesion [Unknown]
  - Feeling cold [Recovered/Resolved]
  - Chills [Recovered/Resolved]
  - Pruritus [Unknown]
  - Rhinalgia [Recovered/Resolved]

NARRATIVE: CASE EVENT DATE: 20160115
